FAERS Safety Report 6465578-5 (Version None)
Quarter: 2009Q4

REPORT INFORMATION
  Report Type: 
  Country: None (occurrence: None)
  Receive Date: 20091201
  Receipt Date: 20081229
  Transmission Date: 20100525
  Serious: No
  Sender: FDA-Public Use
  Company Number: US-AMGEN-KDL316534

PATIENT
  Sex: Female

DRUGS (2)
  1. ENBREL [Suspect]
     Indication: RHEUMATOID ARTHRITIS
     Route: 058
     Dates: start: 20041101, end: 20081020
  2. IMURAN [Concomitant]
     Route: 048

REACTIONS (5)
  - CELLULITIS [None]
  - JOINT DESTRUCTION [None]
  - LOCALISED INFECTION [None]
  - OPEN WOUND [None]
  - RHEUMATOID ARTHRITIS [None]
